FAERS Safety Report 7743033-X (Version None)
Quarter: 2011Q3

REPORT INFORMATION
  Report Type: 
  Country: None (occurrence: None)
  Receive Date: 20110912
  Receipt Date: 20110902
  Transmission Date: 20111222
  Serious: Yes (Hospitalization)
  Sender: FDA-Public Use
  Company Number: FR-ROCHE-748738

PATIENT
  Sex: Male
  Weight: 29.9 kg

DRUGS (11)
  1. CYCLOPHOSPHAMIDE [Suspect]
     Indication: SARCOMA METASTATIC
     Dosage: DOSE:16-25 MG, FORM:16-25 MG/M2, LAST DOSE: 14 DEC 2010
     Route: 042
     Dates: start: 20101018, end: 20101214
  2. FERROSTRANE [Concomitant]
     Dosage: TOTAL DAILY DOSE 10 ML
     Dates: start: 20101215, end: 20110316
  3. BACTRIM [Concomitant]
     Dates: start: 20100227, end: 20101214
  4. DACTINOMYCIN [Suspect]
     Indication: SARCOMA METASTATIC
     Dosage: DOSAGE FORM: 1.5 MG/M2,  DRUG: ACYINOMYCIN D.
     Route: 042
     Dates: start: 20100227
  5. ENALAPRIL MALEATE [Concomitant]
     Dosage: TOTAL DAILY DOSE:10MG/D
     Dates: start: 20101215, end: 20110304
  6. IFOSFAMIDE [Suspect]
     Indication: SARCOMA METASTATIC
     Dosage: DOSAGE FORM: 6G/M2
     Route: 042
     Dates: start: 20100227
  7. ADALAT [Concomitant]
     Dosage: TOTAL DAILY DOSE: 40 MG/D
     Dates: start: 20101215, end: 20110204
  8. VINCRISTINE [Suspect]
     Indication: SARCOMA METASTATIC
     Dosage: DOSAGE FORM: 1.5MG/M2
     Route: 042
     Dates: start: 20100227
  9. VINORELBINE [Suspect]
     Indication: SARCOMA METASTATIC
     Dosage: DOSE:16-25 MG, FORM:16-25 MG/M2, LAST DOSE: 24 NOV 2010
     Route: 042
     Dates: start: 20101018
  10. BEVACIZUMAB [Suspect]
     Indication: SARCOMA METASTATIC
     Dosage: LAST DOSE PRIOR TO SAE: 01 DECEMBER 2010. DOSAGE FORM REPORTED AS: 5 MG/KG, TEMPORARILY INTERRUPTED
     Route: 042
     Dates: start: 20100227, end: 20101214
  11. DOXORUBICIN HCL [Suspect]
     Indication: SARCOMA METASTATIC
     Dosage: DOSAGE FORM: 60MG/M2
     Route: 042
     Dates: start: 20100227

REACTIONS (2)
  - MICROANGIOPATHY [None]
  - POST PROCEDURAL HAEMATOMA [None]
